FAERS Safety Report 14923984 (Version 9)
Quarter: 2022Q1

REPORT INFORMATION
  Report Type: Spontaneous
  Country: ES (occurrence: ES)
  Receive Date: 20180522
  Receipt Date: 20220304
  Transmission Date: 20220423
  Serious: Yes (Hospitalization, Other)
  Sender: FDA-Public Use
  Company Number: ES-BRISTOL-MYERS SQUIBB COMPANY-BMS-2018-039451

PATIENT
  Age: 87 Year
  Sex: Male

DRUGS (19)
  1. FLUOXETINE HYDROCHLORIDE [Suspect]
     Active Substance: FLUOXETINE HYDROCHLORIDE
     Indication: Product used for unknown indication
     Dosage: 20 MG, DAILY
     Route: 065
  2. APIXABAN [Suspect]
     Active Substance: APIXABAN
     Indication: Cerebrovascular accident prophylaxis
     Dosage: 5 MG, DAILY, 2.5MG BID
     Route: 065
  3. MIRABEGRON [Suspect]
     Active Substance: MIRABEGRON
     Indication: Product used for unknown indication
     Dosage: 1 DF, DAILY
     Route: 065
  4. VILDAGLIPTIN [Suspect]
     Active Substance: VILDAGLIPTIN
     Indication: Type 2 diabetes mellitus
     Dosage: 100 MG  50 MG Q12H DAILY
     Route: 048
  5. VILDAGLIPTIN [Suspect]
     Active Substance: VILDAGLIPTIN
     Dosage: 1 DOSAGE FORM, DAILY
     Route: 065
  6. LATANOPROST [Suspect]
     Active Substance: LATANOPROST
     Indication: Product used for unknown indication
     Dosage: 2 [DRP], DAILY
     Route: 047
  7. ALBUTEROL\IPRATROPIUM [Suspect]
     Active Substance: ALBUTEROL\IPRATROPIUM
     Indication: Product used for unknown indication
     Dosage: 4 DF, DAILY
     Route: 045
  8. BUDESONIDE [Suspect]
     Active Substance: BUDESONIDE
     Indication: Product used for unknown indication
     Dosage: 2 DOSAGE FORM, BID
     Route: 045
  9. FENTANYL [Suspect]
     Active Substance: FENTANYL
     Indication: Dyspnoea
     Dosage: UNK UNK, UNKNOWN
     Route: 048
  10. FENTANYL [Suspect]
     Active Substance: FENTANYL
     Indication: Dyspnoea
     Dosage: UNK, UNKNOWN
     Route: 065
  11. FUROSEMIDE [Suspect]
     Active Substance: FUROSEMIDE
     Indication: Product used for unknown indication
     Dosage: 40 MG, DAILY
     Route: 065
  12. FUROSEMIDE [Suspect]
     Active Substance: FUROSEMIDE
     Dosage: 1 DF, DAILY
  13. ALBUTEROL SULFATE\IPRATROPIUM BROMIDE [Suspect]
     Active Substance: ALBUTEROL SULFATE\IPRATROPIUM BROMIDE
     Indication: Product used for unknown indication
     Dosage: 4 DOSAGE FORM, DAILY
     Route: 045
  14. IPRATROPIUM BROMIDE [Suspect]
     Active Substance: IPRATROPIUM BROMIDE
     Indication: Product used for unknown indication
     Dosage: 4 DOSAGE FORM, DAILY
     Route: 045
  15. QUETIAPINE FUMARATE [Suspect]
     Active Substance: QUETIAPINE FUMARATE
     Indication: Product used for unknown indication
     Dosage: 25 MG, TID
     Route: 065
  16. FUROSEMIDE [Concomitant]
     Active Substance: FUROSEMIDE
     Indication: Product used for unknown indication
     Dosage: 40 MG, DAILY
     Route: 065
  17. ROCOZ [QUETIAPINE FUMARATE] [Concomitant]
     Indication: Product used for unknown indication
     Dosage: 25 MG, TID
     Route: 065
  18. VILDAGLIPTIN [Concomitant]
     Active Substance: VILDAGLIPTIN
     Indication: Product used for unknown indication
     Dosage: 50 MG, BID
     Route: 065
  19. PULMICORT TURBUHALER [Concomitant]
     Active Substance: BUDESONIDE
     Indication: Product used for unknown indication
     Dosage: UNK, UNKNOWN
     Route: 065

REACTIONS (16)
  - Blood pressure abnormal [Unknown]
  - C-reactive protein abnormal [Unknown]
  - Heart rate abnormal [Unknown]
  - Haemoglobin abnormal [Unknown]
  - Tachypnoea [Unknown]
  - Bone marrow oedema [Unknown]
  - White blood cell count abnormal [Unknown]
  - Arrhythmia [Unknown]
  - Respiratory failure [Recovered/Resolved]
  - Oedema peripheral [Unknown]
  - Pneumonia [Unknown]
  - Peripheral venous disease [Unknown]
  - Bronchiectasis [Unknown]
  - Tachypnoea [Unknown]
  - Dyspnoea [Recovered/Resolved]
  - Respiratory tract infection [Unknown]
